FAERS Safety Report 7241759-8 (Version None)
Quarter: 2011Q1

REPORT INFORMATION
  Report Type: 
  Country: None (occurrence: None)
  Receive Date: 20110124
  Receipt Date: 20101228
  Transmission Date: 20110831
  Serious: Yes (Other)
  Sender: FDA-Public Use
  Company Number: US-BAYER-2011-006984

PATIENT
  Sex: Female
  Weight: 59 kg

DRUGS (7)
  1. PROZAC [Concomitant]
  2. YAZ [Suspect]
     Indication: PRODUCT USED FOR UNKNOWN INDICATION
     Dosage: UNK
     Dates: start: 20061001, end: 20080801
  3. YASMIN [Suspect]
     Indication: PRODUCT USED FOR UNKNOWN INDICATION
     Dosage: UNK
     Dates: start: 20061001, end: 20080801
  4. ALBUTEROL [Concomitant]
     Indication: ASTHMA
  5. ACYCLOVIR [Concomitant]
     Indication: GENITAL HERPES
  6. FIORICET [Concomitant]
     Indication: MIGRAINE
  7. PRILOSEC [Concomitant]

REACTIONS (4)
  - PAIN [None]
  - GASTRIC DISORDER [None]
  - CHOLELITHIASIS [None]
  - CHOLECYSTITIS CHRONIC [None]
